FAERS Safety Report 6202063-X (Version None)
Quarter: 2009Q2

REPORT INFORMATION
  Report Type: 
  Country: None (occurrence: None)
  Receive Date: 20090526
  Receipt Date: 20090429
  Transmission Date: 20091009
  Serious: Yes (Other)
  Sender: FDA-Public Use
  Company Number: B0575322A

PATIENT
  Sex: Male

DRUGS (8)
  1. AMOXICILLIN [Suspect]
     Indication: ENDOCARDITIS
     Dosage: 6G TWICE PER DAY
     Route: 048
     Dates: start: 20090424
  2. AMOXICILLIN SODIUM [Suspect]
     Indication: ENDOCARDITIS
     Dosage: 12G PER DAY
     Route: 042
     Dates: start: 20090401, end: 20090401
  3. RIFADIN [Concomitant]
     Indication: ENDOCARDITIS
     Dates: start: 20090401
  4. MODURETIC 5-50 [Concomitant]
     Indication: DRUG USE FOR UNKNOWN INDICATION
     Route: 065
  5. LESCOL [Concomitant]
     Indication: DRUG USE FOR UNKNOWN INDICATION
     Route: 065
  6. PERINDOPRIL ERBUMINE [Concomitant]
     Indication: DRUG USE FOR UNKNOWN INDICATION
     Route: 065
  7. PREVISCAN [Concomitant]
     Indication: DRUG USE FOR UNKNOWN INDICATION
     Route: 065
  8. PERMIXON [Concomitant]
     Indication: DRUG USE FOR UNKNOWN INDICATION
     Route: 065

REACTIONS (2)
  - INTERNATIONAL NORMALISED RATIO INCREASED [None]
  - TRANSAMINASES INCREASED [None]
